FAERS Safety Report 18372431 (Version 1)
Quarter: 2020Q4

REPORT INFORMATION
  Report Type: Report from Study
  Country: JP (occurrence: JP)
  Receive Date: 20201012
  Receipt Date: 20201012
  Transmission Date: 20210114
  Serious: Yes (Other)
  Sender: FDA-Public Use
  Company Number: JP-JNJFOC-20201004698

PATIENT

DRUGS (3)
  1. DUROTEP MT [Suspect]
     Active Substance: FENTANYL
     Indication: CANCER PAIN
     Dosage: DOSE UNKNOWN
     Route: 062
  2. MORPHINE [Suspect]
     Active Substance: MORPHINE
     Route: 042
  3. MORPHINE [Suspect]
     Active Substance: MORPHINE
     Indication: PAIN
     Route: 048

REACTIONS (7)
  - Urinary retention [Unknown]
  - Respiratory depression [Unknown]
  - Somnolence [Unknown]
  - Nausea [Unknown]
  - Delirium [Unknown]
  - Pruritus [Unknown]
  - Constipation [Unknown]
